FAERS Safety Report 21315364 (Version 1)
Quarter: 2022Q3

REPORT INFORMATION
  Report Type: Spontaneous
  Country: US (occurrence: None)
  Receive Date: 20220909
  Receipt Date: 20220909
  Transmission Date: 20221026
  Serious: No
  Sender: FDA-Public Use
  Company Number: US-ARIS GLOBAL-202111-2169

PATIENT
  Sex: Female

DRUGS (12)
  1. OXERVATE [Suspect]
     Active Substance: CENEGERMIN-BKBJ
     Indication: Neurotrophic keratopathy
     Route: 047
     Dates: start: 20211104, end: 20211127
  2. BUPROPION HYDROCHLORIDE [Concomitant]
     Active Substance: BUPROPION HYDROCHLORIDE
  3. HUMAN SERUM, NORMAL [Concomitant]
     Active Substance: HUMAN SERUM, NORMAL
  4. FLUOROMETHOLONE [Concomitant]
     Active Substance: FLUOROMETHOLONE
  5. BIOTIN [Concomitant]
     Active Substance: BIOTIN
  6. TYLENOL [Concomitant]
     Active Substance: ACETAMINOPHEN
  7. OMEPRAZOLE [Concomitant]
     Active Substance: OMEPRAZOLE
  8. GABAPENTIN [Concomitant]
     Active Substance: GABAPENTIN
  9. FISH OIL [Concomitant]
     Active Substance: FISH OIL
     Dosage: 100-150 MG
  10. THIAMINE HYDROCHLORIDE [Concomitant]
     Active Substance: THIAMINE HYDROCHLORIDE
  11. SERTRALINE HYDROCHLORIDE [Concomitant]
     Active Substance: SERTRALINE HYDROCHLORIDE
  12. PRAVASTATIN SODIUM [Concomitant]
     Active Substance: PRAVASTATIN SODIUM

REACTIONS (4)
  - Eye pain [Unknown]
  - Eye irritation [Unknown]
  - Ocular hyperaemia [Unknown]
  - Product use complaint [Unknown]
